FAERS Safety Report 16907238 (Version 1)
Quarter: 2019Q4

REPORT INFORMATION
  Report Type: Spontaneous
  Country: FR (occurrence: FR)
  Receive Date: 20191011
  Receipt Date: 20191011
  Transmission Date: 20200122
  Serious: Yes (Death, Life-Threatening)
  Sender: FDA-Public Use
  Company Number: FR-TEVA-2019-FR-1120221

PATIENT
  Age: 54 Year
  Sex: Female
  Weight: 46 kg

DRUGS (5)
  1. DESLORATADINE. [Suspect]
     Active Substance: DESLORATADINE
     Indication: TOXICITY TO VARIOUS AGENTS
     Dosage: 13 5MG TABLETS IN ONE TAKE
     Route: 048
     Dates: start: 20190809
  2. MIANSERINE (CHLORHYDRATE DE) [Suspect]
     Active Substance: MIANSERIN HYDROCHLORIDE
     Indication: TOXICITY TO VARIOUS AGENTS
     Dosage: 3 60 MG TABLETS IN ONE TAKE
     Route: 048
     Dates: start: 20190809
  3. GABAPENTINE [Suspect]
     Active Substance: GABAPENTIN
     Indication: TOXICITY TO VARIOUS AGENTS
     Dosage: 20 300MG CAPSULES IN ONE TAKE
     Route: 048
     Dates: start: 20190809
  4. DIFFU K, GELULE [Suspect]
     Active Substance: POTASSIUM CHLORIDE
     Indication: TOXICITY TO VARIOUS AGENTS
     Dosage: 13 600MG CAPSULES IN ONE TAKE
     Route: 048
     Dates: start: 20190809
  5. ZOLPIDEM [Suspect]
     Active Substance: ZOLPIDEM TARTRATE
     Indication: TOXICITY TO VARIOUS AGENTS
     Dosage: 14 10 MG TABLETS IN ONE TAKE
     Route: 048
     Dates: start: 20190809

REACTIONS (6)
  - Cardio-respiratory arrest [Fatal]
  - Toxicity to various agents [Fatal]
  - Arrhythmia [Fatal]
  - Disseminated intravascular coagulation [Fatal]
  - Hyperkalaemia [Fatal]
  - Respiratory disorder [Fatal]

NARRATIVE: CASE EVENT DATE: 20190809
